FAERS Safety Report 6298369-9 (Version None)
Quarter: 2009Q3

REPORT INFORMATION
  Report Type: 
  Country: None (occurrence: None)
  Receive Date: 20090805
  Receipt Date: 20090728
  Transmission Date: 20100115
  Serious: Yes (Death)
  Sender: FDA-Public Use
  Company Number: A0796931A

PATIENT
  Age: 52 Year
  Sex: Male
  Weight: 103.2 kg

DRUGS (1)
  1. PROMACTA [Suspect]
     Indication: DRUG USE FOR UNKNOWN INDICATION
     Dosage: 50MG UNKNOWN
     Route: 048

REACTIONS (3)
  - ANAEMIA [None]
  - DRUG INEFFECTIVE [None]
  - HAEMORRHAGE [None]
